FAERS Safety Report 4926838-X (Version None)
Quarter: 2006Q1

REPORT INFORMATION
  Report Type: 
  Country: None (occurrence: None)
  Receive Date: 20060228
  Receipt Date: 20050630
  Transmission Date: 20060701
  Serious: No
  Sender: FDA-Public Use
  Company Number: US-GLAXOSMITHKLINE-A0564745A

PATIENT
  Age: 47 Year
  Sex: Female

DRUGS (6)
  1. LAMICTAL [Suspect]
     Indication: BIPOLAR DISORDER
     Route: 048
     Dates: start: 20050620, end: 20050623
  2. TOPAMAX [Suspect]
     Dosage: 100MG TWICE PER DAY
     Route: 048
     Dates: start: 20000101
  3. GEODON [Concomitant]
  4. SEROQUEL [Concomitant]
  5. LEXAPRO [Concomitant]
  6. KLONOPIN [Concomitant]

REACTIONS (1)
  - RECTAL DISCHARGE [None]
